FAERS Safety Report 4804515-3 (Version None)
Quarter: 2005Q4

REPORT INFORMATION
  Report Type: 
  Country: None (occurrence: None)
  Receive Date: 20051018
  Receipt Date: 20051018
  Transmission Date: 20060501
  Serious: Yes (Hospitalization)
  Sender: FDA-Public Use
  Company Number: None

PATIENT
  Age: 67 Year
  Sex: Male

DRUGS (2)
  1. LITHIUM 300MG [Suspect]
     Indication: BIPOLAR DISORDER
     Dosage: 4 CAPSULES HS PO
     Route: 048
     Dates: start: 19910509, end: 20051017
  2. RISPERDAL [Suspect]
     Dosage: 2MG HS PO
     Route: 048
     Dates: start: 20050228, end: 20050916

REACTIONS (4)
  - DROOLING [None]
  - FLUID INTAKE REDUCED [None]
  - GAIT DISTURBANCE [None]
  - TREMOR [None]
